FAERS Safety Report 4993491-9 (Version None)
Quarter: 2006Q2

REPORT INFORMATION
  Report Type: 
  Country: None (occurrence: None)
  Receive Date: 20060505
  Receipt Date: 20060216
  Transmission Date: 20061013
  Serious: Yes (Death, Hospitalization)
  Sender: FDA-Public Use
  Company Number: DE-AMGEN-UK169505

PATIENT
  Sex: Male
  Weight: 68 kg

DRUGS (13)
  1. KEPIVANCE [Suspect]
     Indication: MUCOSAL INFLAMMATION
     Route: 042
     Dates: start: 20060118, end: 20060201
  2. CIPROFLOXACIN [Concomitant]
     Route: 042
     Dates: start: 20060129, end: 20060201
  3. PIPERACILLIN [Concomitant]
     Route: 042
     Dates: start: 20060203, end: 20060206
  4. METRONIDAZOLE [Concomitant]
     Route: 042
     Dates: start: 20060115, end: 20060201
  5. ZOVIRAX [Concomitant]
     Route: 042
     Dates: start: 20060129, end: 20060213
  6. FLUCONAZOLE [Concomitant]
     Route: 042
     Dates: start: 20060129, end: 20060209
  7. SANDIMMUNE [Concomitant]
     Route: 042
     Dates: start: 20060131, end: 20060213
  8. CYCLOPHOSPHAMIDE [Concomitant]
     Route: 042
     Dates: start: 20060127, end: 20060128
  9. CEFTAZIDIME [Concomitant]
     Route: 042
     Dates: start: 20060205, end: 20060208
  10. TARGOSID [Concomitant]
     Route: 042
     Dates: start: 20060206, end: 20060212
  11. PRIMAXIN [Concomitant]
     Route: 042
     Dates: start: 20060208, end: 20060212
  12. METHOTREXATE [Concomitant]
  13. CYCLOSERINE [Concomitant]
     Dates: start: 20060131, end: 20060213

REACTIONS (8)
  - CAPILLARY LEAK SYNDROME [None]
  - CIRCULATORY COLLAPSE [None]
  - HYPOTENSION [None]
  - LUNG INFILTRATION [None]
  - MUCOSAL INFLAMMATION [None]
  - PNEUMONIA [None]
  - RESPIRATORY FAILURE [None]
  - STAPHYLOCOCCAL SEPSIS [None]
